FAERS Safety Report 7438300-3 (Version None)
Quarter: 2011Q2

REPORT INFORMATION
  Report Type: 
  Country: None (occurrence: None)
  Receive Date: 20110426
  Receipt Date: 20110418
  Transmission Date: 20111010
  Serious: Yes (Death, Hospitalization, Other)
  Sender: FDA-Public Use
  Company Number: US-CELGENEUS-163-20785-11031881

PATIENT
  Sex: Female

DRUGS (7)
  1. TRAMADOL [Concomitant]
     Route: 065
  2. MAG-OX [Concomitant]
     Route: 065
  3. ASPIRIN [Concomitant]
     Route: 065
  4. MEGACE [Concomitant]
     Route: 065
  5. THALOMID [Suspect]
     Dosage: 100 MILLIGRAM
     Route: 048
     Dates: start: 20081101, end: 20110304
  6. GLIMEPIRIDE [Concomitant]
     Route: 065
  7. POTASSIUM [Concomitant]
     Route: 065

REACTIONS (4)
  - DEHYDRATION [None]
  - INTESTINAL OBSTRUCTION [None]
  - JOINT INJURY [None]
  - FALL [None]
